FAERS Safety Report 5334665-7 (Version None)
Quarter: 2007Q2

REPORT INFORMATION
  Report Type: 
  Country: None (occurrence: None)
  Receive Date: 20070525
  Receipt Date: 20070517
  Transmission Date: 20071010
  Serious: Yes (Life-Threatening)
  Sender: FDA-Public Use
  Company Number: B0472263A

PATIENT
  Age: 65 Year
  Sex: Female
  Weight: 47 kg

DRUGS (2)
  1. MALARONE [Suspect]
     Indication: FOREIGN TRAVEL
     Route: 048
     Dates: start: 20070319
  2. ASPIRIN [Concomitant]

REACTIONS (3)
  - HYPERSENSITIVITY [None]
  - RASH GENERALISED [None]
  - RESPIRATORY DISORDER [None]
